FAERS Safety Report 12512940 (Version 2)
Quarter: 2016Q3

REPORT INFORMATION
  Report Type: Spontaneous
  Country: US (occurrence: US)
  Receive Date: 20160630
  Receipt Date: 20160912
  Transmission Date: 20161109
  Serious: Yes (Hospitalization)
  Sender: FDA-Public Use
  Company Number: US-JNJFOC-20160611600

PATIENT
  Age: 57 Year
  Sex: Male

DRUGS (6)
  1. FINASTERIDE. [Concomitant]
     Active Substance: FINASTERIDE
     Route: 065
  2. ARMOUR THYROID [Concomitant]
     Active Substance: THYROID, PORCINE
     Route: 065
  3. RABEPRAZOLE [Concomitant]
     Active Substance: RABEPRAZOLE
     Route: 065
  4. XARELTO [Suspect]
     Active Substance: RIVAROXABAN
     Indication: THROMBOSIS PROPHYLAXIS
     Route: 048
     Dates: start: 20150408, end: 20150414
  5. TAMSULOSIN [Concomitant]
     Active Substance: TAMSULOSIN
     Route: 065
  6. HYDROCODONE BITARTRATE AND ACETAMINOPHEN [Concomitant]
     Active Substance: ACETAMINOPHEN\HYDROCODONE BITARTRATE
     Route: 065

REACTIONS (1)
  - Rectal haemorrhage [Recovering/Resolving]

NARRATIVE: CASE EVENT DATE: 201504
